FAERS Safety Report 24839102 (Version 1)
Quarter: 2025Q1

REPORT INFORMATION
  Report Type: Spontaneous
  Country: US (occurrence: US)
  Receive Date: 20250114
  Receipt Date: 20250114
  Transmission Date: 20250408
  Serious: No
  Sender: IBSA INSTITUT BIOCHIMIQUE
  Company Number: US-IBSA PHARMA INC.-2024IBS000425

PATIENT

DRUGS (1)
  1. TIROSINT-SOL [Suspect]
     Active Substance: LEVOTHYROXINE SODIUM
     Indication: Autoimmune thyroiditis
     Dosage: 50 MICROGRAM, QD
     Dates: start: 202405, end: 20240903

REACTIONS (4)
  - Mouth ulceration [None]
  - Stomatitis [None]
  - Mouth injury [None]
  - Product quality issue [Unknown]

NARRATIVE: CASE EVENT DATE: 20240816
